FAERS Safety Report 7653923-4 (Version None)
Quarter: 2011Q3

REPORT INFORMATION
  Report Type: 
  Country: None (occurrence: None)
  Receive Date: 20110803
  Receipt Date: 20110720
  Transmission Date: 20111222
  Serious: Yes (Other)
  Sender: FDA-Public Use
  Company Number: GB-BAUSCH-2011BL004946

PATIENT
  Age: 39 Year
  Sex: Female
  Weight: 103 kg

DRUGS (6)
  1. INSULIN ISOPHANE BW [Suspect]
     Indication: DIABETES MELLITUS
     Route: 065
  2. METFORMIN HCL [Suspect]
     Indication: HYPERGLYCAEMIA
     Route: 048
  3. PREDNISOLONE [Suspect]
     Indication: SARCOIDOSIS
     Route: 065
  4. PREDNISOLONE [Suspect]
     Route: 065
  5. GLICLAZIDE [Concomitant]
     Indication: HYPERGLYCAEMIA
     Route: 048
  6. INSULIN [Suspect]
     Indication: DIABETES MELLITUS
     Route: 065

REACTIONS (3)
  - LACTIC ACIDOSIS [None]
  - WEIGHT INCREASED [None]
  - DIABETES MELLITUS [None]
